FAERS Safety Report 15297844 (Version 1)
Quarter: 2018Q3

REPORT INFORMATION
  Report Type: Report from Study
  Country: DE (occurrence: DE)
  Receive Date: 20180820
  Receipt Date: 20180820
  Transmission Date: 20181010
  Serious: Yes (Hospitalization)
  Sender: FDA-Public Use
  Company Number: PHHY2018DE076977

PATIENT
  Age: 53 Year
  Sex: Female

DRUGS (1)
  1. OMNITROPE [Suspect]
     Active Substance: SOMATROPIN
     Indication: GROWTH HORMONE DEFICIENCY
     Dosage: 0.2 MG, QD
     Route: 065
     Dates: start: 20160825

REACTIONS (3)
  - Joint swelling [Recovered/Resolved]
  - Rheumatic disorder [Recovered/Resolved]
  - Arthralgia [Recovered/Resolved]
